FAERS Safety Report 22288817 (Version 1)
Quarter: 2023Q2

REPORT INFORMATION
  Report Type: Spontaneous
  Country: US (occurrence: US)
  Receive Date: 20230505
  Receipt Date: 20230505
  Transmission Date: 20230721
  Serious: Yes (Hospitalization)
  Sender: FDA-Public Use
  Company Number: US-PFIZER INC-202300178064

PATIENT
  Age: 68 Year
  Sex: Female

DRUGS (1)
  1. PAXLOVID [Suspect]
     Active Substance: NIRMATRELVIR\RITONAVIR
     Indication: COVID-19 treatment
     Dosage: UNK (SHE TOOK SOME PAXLOVID, AT LEAST 2)

REACTIONS (4)
  - Diarrhoea [Unknown]
  - Asthenia [Unknown]
  - Pyrexia [Unknown]
  - Chills [Unknown]
